FAERS Safety Report 5472069-7 (Version None)
Quarter: 2007Q3

REPORT INFORMATION
  Report Type: 
  Country: None (occurrence: None)
  Receive Date: 20070928
  Receipt Date: 20070920
  Transmission Date: 20080115
  Serious: Yes (Other)
  Sender: FDA-Public Use
  Company Number: TW-PFIZER INC-2007080061

PATIENT
  Sex: Male

DRUGS (3)
  1. VIAGRA [Suspect]
     Indication: ERECTILE DYSFUNCTION
     Dosage: TEXT:100MG PRN  TDD:50MG
     Route: 048
     Dates: start: 20040101, end: 20070301
  2. VIAGRA [Suspect]
     Dosage: TEXT:100MG PRN  TDD:100MG
     Route: 048
     Dates: start: 20070301, end: 20070901
  3. CIALIS [Concomitant]
     Route: 048

REACTIONS (2)
  - DRUG INEFFECTIVE [None]
  - SLEEP APNOEA SYNDROME [None]
